FAERS Safety Report 6734609-7 (Version None)
Quarter: 2010Q2

REPORT INFORMATION
  Report Type: 
  Country: None (occurrence: None)
  Receive Date: 20100519
  Receipt Date: 20100503
  Transmission Date: 20101027
  Serious: Yes (Hospitalization, Other)
  Sender: FDA-Public Use
  Company Number: MC201000140

PATIENT
  Age: 66 Year
  Sex: Male
  Weight: 91 kg

DRUGS (7)
  1. ANGIOMAX [Suspect]
     Indication: ANTIPLATELET THERAPY
     Dosage: 13.5 ML, BOLUS, INTRAVENOUS; 31.5 ML, HR, INTRAVENOUS
     Route: 042
     Dates: start: 20080527, end: 20080527
  2. ANGIOMAX [Suspect]
     Indication: ANTIPLATELET THERAPY
     Dosage: 13.5 ML, BOLUS, INTRAVENOUS; 31.5 ML, HR, INTRAVENOUS
     Route: 042
     Dates: start: 20080527
  3. ASPIRIN [Concomitant]
  4. PLAVIX [Concomitant]
  5. INTEGRILIN [Concomitant]
  6. MORPHINE SULFATE INJ [Concomitant]
  7. NITROGLYCERIN [Concomitant]

REACTIONS (5)
  - ACUTE MYOCARDIAL INFARCTION [None]
  - ANGINA UNSTABLE [None]
  - BLOOD CREATINE PHOSPHOKINASE INCREASED [None]
  - COAGULATION TIME PROLONGED [None]
  - THROMBOSIS IN DEVICE [None]
